FAERS Safety Report 20000840 (Version 2)
Quarter: 2022Q1

REPORT INFORMATION
  Report Type: Report from Study
  Country: ES (occurrence: None)
  Receive Date: 20211027
  Receipt Date: 20220202
  Transmission Date: 20220423
  Serious: Yes (Life-Threatening, Hospitalization)
  Sender: FDA-Public Use
  Company Number: ES-ROCHE-2942753

PATIENT
  Age: 77 Year
  Sex: Male
  Weight: 74.6 kg

DRUGS (6)
  1. ATEZOLIZUMAB [Suspect]
     Active Substance: ATEZOLIZUMAB
     Indication: Transitional cell carcinoma
     Dosage: ON 07/OCT/2021, HE RECEIVED MOST RECENT DOSE OF ATEZOLIZUMAB PRIOR TO ONSET OF SERIOUS ADVERSE EVENT
     Route: 041
     Dates: start: 20210610
  2. CISPLATIN [Suspect]
     Active Substance: CISPLATIN
     Indication: Transitional cell carcinoma
     Dosage: 35 MG/M2 ON DAY 1 (D1) AND 35 MG/M2 ON DAY 8 (D8).?ON 14/OCT/2021, HE RECEIVED MOST RECENT DOSE (26.
     Route: 042
     Dates: start: 20210610
  3. GEMCITABINE [Suspect]
     Active Substance: GEMCITABINE
     Indication: Transitional cell carcinoma
     Dosage: 1000 MG/M2 IV ON D1 AND 1000 MG/M2 IV ON D8 OF EACH 21-DAY CYCLE.?ON 14/OCT/2021, HE RECEIVED MOST R
     Route: 042
     Dates: start: 20210610
  4. UNSPECIFIED INGREDIENT [Concomitant]
     Active Substance: UNSPECIFIED INGREDIENT
     Indication: Prophylaxis
     Route: 058
     Dates: start: 20210620
  5. FENTANYL [Concomitant]
     Active Substance: FENTANYL
     Indication: Back pain
     Route: 042
     Dates: start: 20211020
  6. TINZAPARIN [Concomitant]
     Active Substance: TINZAPARIN
     Dates: start: 20210628, end: 20211019

REACTIONS (3)
  - Thrombocytopenia [Recovered/Resolved]
  - Neutropenia [Recovered/Resolved]
  - Pulmonary embolism [Recovered/Resolved]

NARRATIVE: CASE EVENT DATE: 20210628
